FAERS Safety Report 14004642 (Version 2)
Quarter: 2017Q3

REPORT INFORMATION
  Report Type: Report from Study
  Country: US (occurrence: US)
  Receive Date: 20170922
  Receipt Date: 20170928
  Transmission Date: 20171128
  Serious: Yes (Hospitalization)
  Sender: FDA-Public Use
  Company Number: PHEH2017US030537

PATIENT
  Age: 52 Year
  Sex: Male

DRUGS (1)
  1. COSENTYX [Suspect]
     Active Substance: SECUKINUMAB
     Indication: PRODUCT USED FOR UNKNOWN INDICATION
     Dosage: UNK
     Route: 065

REACTIONS (4)
  - Infection [Unknown]
  - Joint swelling [Unknown]
  - Peripheral swelling [Unknown]
  - Cellulitis [Unknown]

NARRATIVE: CASE EVENT DATE: 20170829
